FAERS Safety Report 12602754 (Version 2)
Quarter: 2016Q3

REPORT INFORMATION
  Report Type: Spontaneous
  Country: PL (occurrence: PL)
  Receive Date: 20160728
  Receipt Date: 20160812
  Transmission Date: 20161109
  Serious: Yes (Hospitalization)
  Sender: FDA-Public Use
  Company Number: PL-SA-2016SA130973

PATIENT
  Age: 60 Year
  Sex: Female
  Weight: 51 kg

DRUGS (2)
  1. CYCLO 3 FORT [Concomitant]
     Active Substance: ASCORBIC ACID\HESPERIDIN METHYLCHALCONE\RUSCUS ACULEATUS ROOT
     Route: 065
  2. CLEXANE [Suspect]
     Active Substance: ENOXAPARIN SODIUM
     Indication: THROMBOSIS PROPHYLAXIS
     Dosage: STOP- APPROXIMATELY 3 WEEKS
     Route: 051
     Dates: start: 20160723

REACTIONS (5)
  - Night sweats [Recovered/Resolved]
  - Palpitations [Recovered/Resolved]
  - Anaemia [Unknown]
  - Pyrexia [Recovered/Resolved]
  - Thrombocytosis [Recovered/Resolved]
